FAERS Safety Report 17623232 (Version 1)
Quarter: 2020Q2

REPORT INFORMATION
  Report Type: Spontaneous
  Country: GR (occurrence: GR)
  Receive Date: 20200403
  Receipt Date: 20200403
  Transmission Date: 20200713
  Serious: Yes (Congenital Anomaly, Other)
  Sender: FDA-Public Use
  Company Number: GR-PFIZER INC-2020136969

PATIENT

DRUGS (5)
  1. XOZAL [Suspect]
     Active Substance: LEVOCETIRIZINE
     Dosage: UNK
     Route: 064
  2. ZITHROMAX [Suspect]
     Active Substance: AZITHROMYCIN DIHYDRATE
     Dosage: UNK
     Route: 064
  3. AEROLIN [Suspect]
     Active Substance: ALBUTEROL
     Dosage: UNK
     Route: 064
  4. PRIMOLUT NOR [Suspect]
     Active Substance: NORETHINDRONE ACETATE
     Dosage: UNK
     Route: 064
  5. TREBON N [Suspect]
     Active Substance: ACETYLCYSTEINE
     Dosage: UNK
     Route: 064

REACTIONS (2)
  - Maternal exposure during pregnancy [Unknown]
  - Congenital anomaly [Unknown]
